FAERS Safety Report 4875075-6 (Version None)
Quarter: 2006Q1

REPORT INFORMATION
  Report Type: 
  Country: None (occurrence: None)
  Receive Date: 20060109
  Receipt Date: 20030630
  Transmission Date: 20060701
  Serious: Yes (Hospitalization)
  Sender: FDA-Public Use
  Company Number: US-GLAXOSMITHKLINE-A0414942A

PATIENT
  Age: 58 Year
  Sex: Female

DRUGS (7)
  1. ADVAIR DISKUS 250/50 [Suspect]
     Indication: ASTHMA
     Dosage: 1PUFF TWICE PER DAY
     Route: 055
     Dates: start: 20030423, end: 20030701
  2. PAXIL CR [Suspect]
     Indication: ANXIETY
     Dosage: 12.5MG AT NIGHT
     Route: 048
     Dates: start: 20030101
  3. SERZONE [Suspect]
     Indication: FIBROMYALGIA
     Dosage: 100MG PER DAY
     Dates: start: 19980101, end: 20030101
  4. ALBUTEROL [Concomitant]
     Route: 055
  5. ATROVENT [Concomitant]
  6. PREDNISONE [Concomitant]
  7. ELAVIL [Concomitant]

REACTIONS (16)
  - ADVERSE EVENT [None]
  - ANAEMIA [None]
  - CANDIDIASIS [None]
  - DIAPHRAGMATIC DISORDER [None]
  - DRUG INEFFECTIVE [None]
  - DYSPHASIA [None]
  - DYSPHONIA [None]
  - DYSPNOEA [None]
  - FUNGAL OESOPHAGITIS [None]
  - HAEMOPTYSIS [None]
  - OESOPHAGEAL DISORDER [None]
  - ORAL CANDIDIASIS [None]
  - PULMONARY HAEMORRHAGE [None]
  - PULMONARY MASS [None]
  - PULMONARY MYCOSIS [None]
  - TREMOR [None]
